FAERS Safety Report 13911624 (Version 1)
Quarter: 2017Q3

REPORT INFORMATION
  Report Type: Spontaneous
  Country: US (occurrence: US)
  Receive Date: 20170828
  Receipt Date: 20170828
  Transmission Date: 20171127
  Serious: No
  Sender: FDA-Public Use
  Company Number: US-ROCHE-1142010

PATIENT
  Sex: Male
  Weight: 18.1 kg

DRUGS (6)
  1. NUTROPIN [Suspect]
     Active Substance: SOMATROPIN
     Route: 065
  2. CORTEF [Concomitant]
     Active Substance: HYDROCORTISONE
  3. CLONIDINE. [Concomitant]
     Active Substance: CLONIDINE
  4. SYNTHROID [Concomitant]
     Active Substance: LEVOTHYROXINE SODIUM
  5. TESTOSTERONE ENANTHATE. [Concomitant]
     Active Substance: TESTOSTERONE ENANTHATE
     Route: 030
  6. NUTROPIN [Suspect]
     Active Substance: SOMATROPIN
     Indication: HYPOPITUITARISM
     Dosage: 0.3 MG/KG/WEEK
     Route: 065

REACTIONS (4)
  - Drug dose omission [Unknown]
  - Polyuria [Unknown]
  - Epistaxis [Unknown]
  - Pallor [Unknown]
